FAERS Safety Report 5872174-7 (Version None)
Quarter: 2008Q3

REPORT INFORMATION
  Report Type: 
  Country: None (occurrence: None)
  Receive Date: 20080905
  Receipt Date: 20080828
  Transmission Date: 20090109
  Serious: Yes (Other)
  Sender: FDA-Public Use
  Company Number: US-JNJFOC-20080900503

PATIENT
  Age: 77 Year
  Sex: Male

DRUGS (4)
  1. REOPRO [Suspect]
     Route: 042
  2. REOPRO [Suspect]
     Indication: STENT OCCLUSION
     Route: 042
  3. REOPRO [Suspect]
     Indication: ACUTE MYOCARDIAL INFARCTION
     Route: 042
  4. COUMADIN [Concomitant]
     Route: 065

REACTIONS (2)
  - PLATELET COUNT DECREASED [None]
  - STENT OCCLUSION [None]
